FAERS Safety Report 8068899-8 (Version None)
Quarter: 2012Q1

REPORT INFORMATION
  Report Type: 
  Country: None (occurrence: None)
  Receive Date: 20120125
  Receipt Date: 20120117
  Transmission Date: 20120608
  Serious: No
  Sender: FDA-Public Use
  Company Number: US-BIOGENIDEC-2012BI001986

PATIENT
  Sex: Female

DRUGS (1)
  1. AVONEX [Suspect]
     Indication: MULTIPLE SCLEROSIS
     Route: 030
     Dates: start: 19981001, end: 20111231

REACTIONS (5)
  - ANXIETY [None]
  - DEPRESSION [None]
  - PAIN [None]
  - INJECTION SITE PAIN [None]
  - MOOD ALTERED [None]
